FAERS Safety Report 5829168-7 (Version None)
Quarter: 2008Q3

REPORT INFORMATION
  Report Type: 
  Country: None (occurrence: None)
  Receive Date: 20080731
  Receipt Date: 20080721
  Transmission Date: 20090109
  Serious: Yes (Life-Threatening, Hospitalization, Other)
  Sender: FDA-Public Use
  Company Number: CH-ABBOTT-08P-151-0464545-00

PATIENT
  Age: 53 Year
  Sex: Female

DRUGS (12)
  1. DEPAKENE [Suspect]
     Indication: DRUG USE FOR UNKNOWN INDICATION
     Route: 048
  2. CITALOPRAM HYDROBROMIDE [Interacting]
     Indication: SUICIDE ATTEMPT
     Route: 048
     Dates: end: 20080629
  3. CITALOPRAM HYDROBROMIDE [Interacting]
     Indication: DEPRESSION
     Route: 048
     Dates: start: 20080629, end: 20080629
  4. QUETIAPINE [Interacting]
     Indication: SUICIDE ATTEMPT
     Route: 048
     Dates: start: 20080629, end: 20080629
  5. QUETIAPINE [Interacting]
     Route: 048
     Dates: start: 20080629, end: 20080629
  6. OLANZAPINE [Interacting]
     Indication: SUICIDE ATTEMPT
     Route: 048
     Dates: end: 20080629
  7. OLANZAPINE [Interacting]
     Indication: DEPRESSION
     Route: 048
     Dates: start: 20080629, end: 20080629
  8. LORAZEPAM [Interacting]
     Indication: SUICIDE ATTEMPT
     Route: 048
     Dates: end: 20080629
  9. LORAZEPAM [Interacting]
     Indication: DEPRESSION
     Route: 048
     Dates: start: 20080629, end: 20080629
  10. CEPHALEXIN [Suspect]
     Indication: SUICIDE ATTEMPT
     Dates: start: 20080629, end: 20080629
  11. ETHANOL [Suspect]
     Indication: SUICIDE ATTEMPT
     Route: 048
     Dates: start: 20080629, end: 20080629
  12. PANTOPRAZOLE SODIUM [Concomitant]
     Indication: DRUG USE FOR UNKNOWN INDICATION
     Route: 048

REACTIONS (8)
  - ALCOHOL POISONING [None]
  - COMA [None]
  - DELIRIUM [None]
  - DRUG INTERACTION [None]
  - HYPOVENTILATION [None]
  - INCONTINENCE [None]
  - MIOSIS [None]
  - SUICIDE ATTEMPT [None]
